FAERS Safety Report 16765734 (Version 4)
Quarter: 2022Q1

REPORT INFORMATION
  Report Type: Other
  Country: PT (occurrence: PT)
  Receive Date: 20190903
  Receipt Date: 20220124
  Transmission Date: 20220424
  Serious: Yes (Life-Threatening, Other)
  Sender: FDA-Public Use
  Company Number: PT-ASTELLAS-2019US025217

PATIENT
  Age: 15 Year
  Sex: Female
  Weight: 50 kg

DRUGS (9)
  1. AMBISOME [Suspect]
     Active Substance: AMPHOTERICIN B
     Indication: Mucormycosis
     Route: 042
     Dates: start: 20190221, end: 20190221
  2. AMBISOME [Suspect]
     Active Substance: AMPHOTERICIN B
     Indication: Sinusitis fungal
     Dosage: UNK UNK, UNKNOWN FREQ.
     Route: 042
     Dates: start: 201903, end: 201903
  3. AMBISOME [Suspect]
     Active Substance: AMPHOTERICIN B
     Dosage: 0.025 MG, UNKNOWN FREQ.
     Route: 042
     Dates: start: 20190507, end: 20190508
  4. MEROPENEM [Concomitant]
     Active Substance: MEROPENEM
     Indication: Product used for unknown indication
     Route: 042
  5. VANCOMYCIN [Concomitant]
     Active Substance: VANCOMYCIN
     Indication: Product used for unknown indication
     Dosage: UNK UNK, UNKNOWN FREQ.
     Route: 042
  6. VANCOMYCIN [Concomitant]
     Active Substance: VANCOMYCIN
     Dosage: UNK UNK, UNKNOWN FREQ.
     Route: 042
  7. VANCOMYCIN [Concomitant]
     Active Substance: VANCOMYCIN
     Dosage: UNK UNK, UNKNOWN FREQ.
     Route: 042
  8. AMIKACIN [Concomitant]
     Active Substance: AMIKACIN
     Indication: Product used for unknown indication
     Dosage: UNK UNK, UNKNOWN FREQ.
     Route: 042
  9. AMIKACIN [Concomitant]
     Active Substance: AMIKACIN
     Dosage: UNK UNK, UNKNOWN FREQ.
     Route: 042

REACTIONS (2)
  - Anaphylactic reaction [Recovered/Resolved]
  - Anaphylactic reaction [Recovered/Resolved]

NARRATIVE: CASE EVENT DATE: 20190221
